FAERS Safety Report 20050059 (Version 1)
Quarter: 2021Q4

REPORT INFORMATION
  Report Type: Spontaneous
  Country: US (occurrence: None)
  Receive Date: 20211109
  Receipt Date: 20211109
  Transmission Date: 20220303
  Serious: Yes (Other)
  Sender: FDA-Public Use
  Company Number: None

PATIENT
  Age: 43 Year
  Sex: Female
  Weight: 74.1 kg

DRUGS (19)
  1. CASIRIVIMAB\IMDEVIMAB [Suspect]
     Active Substance: CASIRIVIMAB\IMDEVIMAB
     Indication: COVID-19
     Route: 042
     Dates: start: 20211104, end: 20211104
  2. AMLODIPINE [Concomitant]
     Active Substance: AMLODIPINE BESYLATE
  3. APIXABAN [Concomitant]
     Active Substance: APIXABAN
  4. ATORVASTATIN [Concomitant]
     Active Substance: ATORVASTATIN
  5. CALCITRIOL [Concomitant]
     Active Substance: CALCITRIOL
  6. COLESTIPOL [Concomitant]
     Active Substance: COLESTIPOL
  7. cyanacobalamin [Concomitant]
  8. DARBEPOETIN ALFA [Concomitant]
     Active Substance: DARBEPOETIN ALFA
  9. FERROUS SULFATE [Concomitant]
     Active Substance: FERROUS SULFATE
  10. insulin detemir/insulin lispro [Concomitant]
  11. METOPROLOL [Concomitant]
     Active Substance: METOPROLOL
  12. PANTOPRAZOLE [Concomitant]
     Active Substance: PANTOPRAZOLE
  13. PREDNISONE [Concomitant]
     Active Substance: PREDNISONE
  14. SODIUM BICARBONATE [Concomitant]
     Active Substance: SODIUM BICARBONATE
  15. TACROLIMUS [Concomitant]
     Active Substance: TACROLIMUS
  16. ACETAMINOPHEN [Concomitant]
     Active Substance: ACETAMINOPHEN
  17. HYDROXYZINE [Concomitant]
     Active Substance: HYDROXYZINE HYDROCHLORIDE
  18. ONDANSETRON [Concomitant]
     Active Substance: ONDANSETRON
  19. PROMETHAZINE [Concomitant]
     Active Substance: PROMETHAZINE HYDROCHLORIDE

REACTIONS (12)
  - Throat irritation [None]
  - Dyspnoea [None]
  - Respiratory rate increased [None]
  - Lung disorder [None]
  - Hypoxia [None]
  - Metabolic acidosis [None]
  - Anaemia [None]
  - Thrombocytopenia [None]
  - C-reactive protein increased [None]
  - Acute kidney injury [None]
  - Infusion related reaction [None]
  - Interleukin level increased [None]

NARRATIVE: CASE EVENT DATE: 20211104
